FAERS Safety Report 6167418-0 (Version None)
Quarter: 2009Q2

REPORT INFORMATION
  Report Type: 
  Country: None (occurrence: None)
  Receive Date: 20090424
  Receipt Date: 20090415
  Transmission Date: 20091009
  Serious: Yes (Hospitalization, Other)
  Sender: FDA-Public Use
  Company Number: PHHY2008DE24511

PATIENT
  Sex: Male

DRUGS (1)
  1. SEBIVO [Suspect]
     Dosage: 1 DF, QD
     Route: 048
     Dates: start: 20070101

REACTIONS (5)
  - ABDOMINAL PAIN [None]
  - ARTHRALGIA [None]
  - ARTHRITIS [None]
  - HEPATIC NEOPLASM MALIGNANT [None]
  - MYALGIA [None]
